FAERS Safety Report 5125852-1 (Version None)
Quarter: 2006Q4

REPORT INFORMATION
  Report Type: 
  Country: None (occurrence: None)
  Receive Date: 20061012
  Receipt Date: 20060719
  Transmission Date: 20070319
  Serious: Yes (Hospitalization)
  Sender: FDA-Public Use
  Company Number: GB-BAYER-200610849BNE

PATIENT
  Age: 58 Year
  Sex: Female

DRUGS (5)
  1. SORAFENIB [Suspect]
     Indication: METASTATIC MALIGNANT MELANOMA
     Dates: start: 20060626
  2. DACARBAZINE [Suspect]
     Indication: METASTATIC MALIGNANT MELANOMA
     Route: 042
     Dates: start: 20060717, end: 20060717
  3. BENDROFLUAZIDE [Concomitant]
     Indication: HYPERTENSION
     Route: 048
     Dates: start: 20030101
  4. LOSARTAN POSTASSIUM [Concomitant]
     Indication: HYPERTENSION
     Route: 048
     Dates: start: 20030101
  5. ZOPICLONE [Concomitant]
     Indication: SEDATION
     Route: 048
     Dates: start: 20060511

REACTIONS (1)
  - PALPITATIONS [None]
